FAERS Safety Report 5868247-5 (Version None)
Quarter: 2008Q3

REPORT INFORMATION
  Report Type: 
  Country: None (occurrence: None)
  Receive Date: 20080902
  Receipt Date: 20080822
  Transmission Date: 20090109
  Serious: Yes (Hospitalization)
  Sender: FDA-Public Use
  Company Number: SE-PFIZER INC-2008071138

PATIENT
  Sex: Male

DRUGS (10)
  1. PREDNISOLONE [Suspect]
  2. CORDARONE [Suspect]
     Dates: start: 20020501, end: 20080401
  3. LORATADINE [Concomitant]
  4. OMEPRAZOLE [Concomitant]
  5. SIMVASTATIN [Concomitant]
  6. CETIRIZINE HCL [Concomitant]
  7. PROPAVAN [Concomitant]
  8. ALVEDON FORTE [Concomitant]
  9. DICLOFENAC [Concomitant]
  10. IMOVANE [Concomitant]

REACTIONS (6)
  - DIABETES MELLITUS [None]
  - GENERAL PHYSICAL HEALTH DETERIORATION [None]
  - INFLUENZA [None]
  - INTERSTITIAL LUNG DISEASE [None]
  - PULMONARY FIBROSIS [None]
  - SEPSIS [None]
